FAERS Safety Report 6815121-3 (Version None)
Quarter: 2010Q3

REPORT INFORMATION
  Report Type: 
  Country: None (occurrence: None)
  Receive Date: 20100702
  Receipt Date: 20100621
  Transmission Date: 20110219
  Serious: Yes (Other)
  Sender: FDA-Public Use
  Company Number: PHHY2010AU36787

PATIENT
  Sex: Male

DRUGS (2)
  1. SANDOSTATIN LAR [Suspect]
     Indication: NEUROENDOCRINE TUMOUR
     Dosage: 30 MG, UNK
     Dates: start: 20060801
  2. WARFARIN [Concomitant]

REACTIONS (13)
  - CALCIFICATION METASTATIC [None]
  - CARDIAC DISORDER [None]
  - COMPUTERISED TOMOGRAM ABNORMAL [None]
  - DYSPNOEA [None]
  - FATIGUE [None]
  - LUNG INFECTION [None]
  - LUNG NEOPLASM [None]
  - MALIGNANT NEOPLASM PROGRESSION [None]
  - METASTASES TO LIVER [None]
  - PULMONARY HAEMORRHAGE [None]
  - PULMONARY INFARCTION [None]
  - PULMONARY MASS [None]
  - TUMOUR THROMBOSIS [None]
